FAERS Safety Report 19179218 (Version 2)
Quarter: 2021Q2

REPORT INFORMATION
  Report Type: Spontaneous
  Country: US (occurrence: US)
  Receive Date: 20210426
  Receipt Date: 20210501
  Transmission Date: 20210717
  Serious: Yes (Other)
  Sender: FDA-Public Use
  Company Number: US-ASTRAZENECA-2021A343692

PATIENT
  Sex: Female
  Weight: 50.3 kg

DRUGS (1)
  1. TUDORZA PRESSAIR [Suspect]
     Active Substance: ACLIDINIUM BROMIDE
     Indication: CHRONIC OBSTRUCTIVE PULMONARY DISEASE
     Dosage: 2 PUFFS A DAY, ONCE IN MORNING AND EVENING
     Route: 055

REACTIONS (6)
  - Dyspnoea [Unknown]
  - Device issue [Unknown]
  - Gait inability [Unknown]
  - Lung neoplasm malignant [Unknown]
  - Wrong technique in device usage process [Unknown]
  - Product dose omission issue [Unknown]
